FAERS Safety Report 10507763 (Version 1)
Quarter: 2014Q4

REPORT INFORMATION
  Report Type: Spontaneous
  Country: US (occurrence: None)
  Receive Date: 20141008
  Receipt Date: 20141008
  Transmission Date: 20150528
  Serious: No
  Sender: FDA-Public Use
  Company Number: None

PATIENT
  Age: 78 Year
  Weight: 74.84 kg

DRUGS (1)
  1. ICY HOT [Suspect]
     Active Substance: MENTHOL\METHYL SALICYLATE
     Indication: BACK PAIN
     Dosage: ONCE DAILY APPLIED TO A SURFACE, USUALLY THE SKIN
     Dates: start: 20141003, end: 20141003

REACTIONS (2)
  - Application site burn [None]
  - Burns first degree [None]

NARRATIVE: CASE EVENT DATE: 20141003
